FAERS Safety Report 7550392-X (Version None)
Quarter: 2011Q2

REPORT INFORMATION
  Report Type: 
  Country: None (occurrence: None)
  Receive Date: 20110615
  Receipt Date: 20110607
  Transmission Date: 20111010
  Serious: Yes (Hospitalization)
  Sender: FDA-Public Use
  Company Number: AU-ROCHE-781159

PATIENT
  Sex: Female

DRUGS (2)
  1. PEGASYS [Suspect]
     Dosage: ROUTE, DOSE AND FREQUENCY WAS NOT REPORTED. PATIENT HAS MISSED WEEK 11 INTERFERON.
     Route: 065
  2. RIBAVIRIN [Suspect]
     Dosage: ROUTE, DOSE AND FREQUENCY WAS NOT REPORTED. PATIENT MISSED 10 DAYS OF RIBAVIRIN THERAPY.
     Route: 065

REACTIONS (2)
  - CHOLECYSTITIS ACUTE [None]
  - PANCREATITIS [None]
